FAERS Safety Report 5118932-8 (Version None)
Quarter: 2006Q3

REPORT INFORMATION
  Report Type: 
  Country: None (occurrence: None)
  Receive Date: 20060927
  Receipt Date: 20060918
  Transmission Date: 20061208
  Serious: Yes (Other)
  Sender: FDA-Public Use
  Company Number: 2006097969

PATIENT
  Age: 77 Year
  Sex: Female
  Weight: 65.7716 kg

DRUGS (9)
  1. LYRICA [Suspect]
     Indication: NEUROPATHY PERIPHERAL
     Dosage: 100 MG (50 MG, 2 IN 1 D)
     Dates: start: 20060101
  2. DOXEPIN HCL [Suspect]
  3. KLONOPIN [Concomitant]
  4. ZOCOR [Concomitant]
  5. AMBIEN [Concomitant]
  6. ATENOLOL [Concomitant]
  7. VITAMINS (VITAMINS) [Concomitant]
  8. PROVIGIL [Concomitant]
  9. IBUPROFEN [Concomitant]

REACTIONS (8)
  - ASTHENOPIA [None]
  - BURNING SENSATION [None]
  - DIPLOPIA [None]
  - DRUG EFFECT DECREASED [None]
  - IMPAIRED DRIVING ABILITY [None]
  - INSOMNIA [None]
  - IRRITABILITY [None]
  - VISUAL DISTURBANCE [None]
